FAERS Safety Report 9028374 (Version 2)
Quarter: 2013Q1

REPORT INFORMATION
  Report Type: Spontaneous
  Country: IN (occurrence: IN)
  Receive Date: 20130124
  Receipt Date: 20130130
  Transmission Date: 20140127
  Serious: Yes (Death, Other)
  Sender: FDA-Public Use
  Company Number: IN-COVIDIEN/TYCO HEALTHCARE/MALLINCKRODT-T201300101

PATIENT
  Age: 62 Year
  Sex: Female
  Weight: 50 kg

DRUGS (1)
  1. OPTIRAY [Suspect]
     Indication: COMPUTERISED TOMOGRAM
     Dosage: 85 ML, SINGLE, 1.8 ML/MIN
     Route: 042
     Dates: start: 20130116, end: 20130116

REACTIONS (2)
  - Cardio-respiratory arrest [Fatal]
  - Syncope [Recovered/Resolved]
